FAERS Safety Report 16887108 (Version 1)
Quarter: 2019Q4

REPORT INFORMATION
  Report Type: Spontaneous
  Country: US (occurrence: US)
  Receive Date: 20191004
  Receipt Date: 20191004
  Transmission Date: 20200122
  Serious: No
  Sender: FDA-Public Use
  Company Number: US-TEVA-2019-US-1116344

PATIENT
  Sex: Female

DRUGS (1)
  1. PENICILLIN G POTASSIUM. [Suspect]
     Active Substance: PENICILLIN G POTASSIUM
     Indication: TOOTH ABSCESS
     Route: 065
     Dates: start: 20190923

REACTIONS (2)
  - Swelling [Unknown]
  - Abdominal distension [Unknown]

NARRATIVE: CASE EVENT DATE: 20190924
